FAERS Safety Report 7210639-6 (Version None)
Quarter: 2010Q4

REPORT INFORMATION
  Report Type: 
  Country: None (occurrence: None)
  Receive Date: 20101227
  Receipt Date: 20101217
  Transmission Date: 20110411
  Serious: Yes (Hospitalization)
  Sender: FDA-Public Use
  Company Number: 2010-3366

PATIENT
  Age: 63 Year
  Sex: Female
  Weight: 54 kg

DRUGS (11)
  1. DYSPORT [Suspect]
     Indication: OFF LABEL USE
     Dosage: 150 UNIT (150 UNITS, SINGLE CYCLE)
     Dates: start: 20100923, end: 20100923
  2. DYSPORT [Suspect]
     Indication: SKIN WRINKLING
     Dosage: 150 UNIT (150 UNITS, SINGLE CYCLE)
     Dates: start: 20100923, end: 20100923
  3. CITALOPRAM (CITALOPRAM) [Concomitant]
  4. FEMHRT (ANOVLAR) [Concomitant]
  5. TEMAZEPAM [Concomitant]
  6. FOLIC ACID [Concomitant]
  7. VITAMIN D [Concomitant]
  8. VITAMIN B12 [Concomitant]
  9. FISH OIL (FISH OIL) [Concomitant]
  10. CALCIUM (CALCIUM) [Concomitant]
  11. MULTIVITAMIN PLUS IRON (MULTIVITAMINS AND IRON) [Concomitant]

REACTIONS (10)
  - CHEST PAIN [None]
  - CONTUSION [None]
  - DIZZINESS [None]
  - DRUG INEFFECTIVE [None]
  - ELECTROCARDIOGRAM ABNORMAL [None]
  - NAUSEA [None]
  - OFF LABEL USE [None]
  - PRODUCT QUALITY ISSUE [None]
  - REFUSAL OF TREATMENT BY PATIENT [None]
  - VOMITING [None]
